FAERS Safety Report 6315244-1 (Version None)
Quarter: 2009Q3

REPORT INFORMATION
  Report Type: 
  Country: None (occurrence: None)
  Receive Date: 20090819
  Receipt Date: 20090811
  Transmission Date: 20100115
  Serious: Yes (Hospitalization, Other)
  Sender: FDA-Public Use
  Company Number: PHHY2009BR34109

PATIENT
  Sex: Female
  Weight: 82 kg

DRUGS (8)
  1. DIOVAN [Suspect]
     Indication: HYPERTENSION
     Dosage: 160 MG, QD
     Route: 048
     Dates: start: 20020101
  2. DIOVAN [Suspect]
     Dosage: 160 MG, BID
     Dates: start: 20070401
  3. DIOVAN [Suspect]
     Dosage: 160 MG, QD
  4. VASLIP [Concomitant]
     Indication: BLOOD CHOLESTEROL INCREASED
     Dosage: 1 TABLET (20 MG) AT NIGHT
     Route: 048
     Dates: start: 20020101
  5. VASLIP [Concomitant]
     Indication: HYPERGLYCAEMIA
  6. SOMALGIN [Concomitant]
     Indication: ANTICOAGULANT THERAPY
     Dosage: 1 TABLET (100 MG) A DAY
     Route: 048
     Dates: start: 20000101
  7. OMEPRAZOLE [Concomitant]
     Indication: HIATUS HERNIA
     Dosage: 1 TABLET IN FASTING
     Route: 048
  8. GLIFOR [Concomitant]
     Dosage: 850 MG, BID

REACTIONS (11)
  - ARTHRITIS [None]
  - ASTHMA [None]
  - BACK PAIN [None]
  - BLOOD PRESSURE FLUCTUATION [None]
  - BLOOD PRESSURE INCREASED [None]
  - CAROTID ARTERY OCCLUSION [None]
  - DYSPHONIA [None]
  - GLUCOSE TOLERANCE IMPAIRED [None]
  - SURGERY [None]
  - SWELLING [None]
  - VARICOSE VEIN OPERATION [None]
